FAERS Safety Report 9442954 (Version 1)
Quarter: 2013Q3

REPORT INFORMATION
  Report Type: Spontaneous
  Country: US (occurrence: None)
  Receive Date: 20130805
  Receipt Date: 20130805
  Transmission Date: 20140515
  Serious: Yes (Life-Threatening, Other)
  Sender: FDA-Public Use
  Company Number: None

PATIENT
  Age: 40 Year
  Sex: Male
  Weight: 81.65 kg

DRUGS (1)
  1. PENTASA [Suspect]
     Indication: CROHN^S DISEASE
     Dosage: 500MG 8 CAPSULES 4X DAY ORAL
     Route: 048
     Dates: start: 20130715, end: 20130720

REACTIONS (7)
  - Mood swings [None]
  - Fatigue [None]
  - Agitation [None]
  - Asthenia [None]
  - Dizziness [None]
  - Decreased interest [None]
  - Suicidal ideation [None]
